FAERS Safety Report 23997647 (Version 1)
Quarter: 2024Q2

REPORT INFORMATION
  Report Type: Report from Study
  Country: GR (occurrence: GR)
  Receive Date: 20240621
  Receipt Date: 20240621
  Transmission Date: 20240715
  Serious: Yes (Hospitalization)
  Sender: FDA-Public Use
  Company Number: GR-ABBVIE-5805634

PATIENT
  Age: 49 Year
  Sex: Male

DRUGS (6)
  1. UPADACITINIB [Suspect]
     Active Substance: UPADACITINIB
     Indication: Colitis ulcerative
     Route: 048
     Dates: start: 20240327, end: 20240521
  2. UPADACITINIB [Suspect]
     Active Substance: UPADACITINIB
     Indication: Colitis ulcerative
     Route: 048
     Dates: start: 20240522, end: 20240616
  3. MESALAMINE [Concomitant]
     Active Substance: MESALAMINE
     Indication: Colitis ulcerative
     Dosage: REC SUS
     Route: 054
     Dates: start: 20240410
  4. MESALAMINE [Concomitant]
     Active Substance: MESALAMINE
     Indication: Colitis ulcerative
     Route: 048
     Dates: start: 20240520
  5. FOLATE SODIUM [Concomitant]
     Active Substance: FOLATE SODIUM
     Indication: Folate deficiency
     Route: 048
     Dates: start: 20240219
  6. ENOXAPARINE TEVA [Concomitant]
     Indication: Thrombosis prophylaxis
     Route: 058
     Dates: start: 20240517

REACTIONS (1)
  - Cytomegalovirus colitis [Not Recovered/Not Resolved]

NARRATIVE: CASE EVENT DATE: 20240617
